FAERS Safety Report 19357472 (Version 1)
Quarter: 2021Q2

REPORT INFORMATION
  Report Type: Spontaneous
  Country: US (occurrence: US)
  Receive Date: 20210601
  Receipt Date: 20210601
  Transmission Date: 20210717
  Serious: Yes (Hospitalization, Other)
  Sender: FDA-Public Use
  Company Number: US-AUROBINDO-AUR-APL-2012-03751

PATIENT
  Age: 56 Year
  Sex: Female

DRUGS (3)
  1. TELAPREVIR [Suspect]
     Active Substance: TELAPREVIR
     Indication: HEPATITIS C
     Dosage: UNK
     Route: 065
  2. RIBAVIRIN. [Suspect]
     Active Substance: RIBAVIRIN
     Indication: HEPATITIS C
     Dosage: UNK UNK,UNK,
     Route: 065
  3. PEGINTERFERON ALFA?2A. [Suspect]
     Active Substance: PEGINTERFERON ALFA-2A
     Indication: HEPATITIS C
     Dosage: UNK UNK,UNK,
     Route: 065

REACTIONS (11)
  - Lymphocyte morphology abnormal [Unknown]
  - Arthralgia [Unknown]
  - Pyrexia [Unknown]
  - Drug reaction with eosinophilia and systemic symptoms [Unknown]
  - Syncope [Unknown]
  - Rash [Unknown]
  - Lymphadenopathy [Unknown]
  - Eosinophilia [Unknown]
  - Skin plaque [Unknown]
  - Drug hypersensitivity [Unknown]
  - Thrombocytopenia [Unknown]
